FAERS Safety Report 16669352 (Version 1)
Quarter: 2019Q3

REPORT INFORMATION
  Report Type: Spontaneous
  Country: FR (occurrence: FR)
  Receive Date: 20190805
  Receipt Date: 20190805
  Transmission Date: 20191004
  Serious: Yes (Other)
  Sender: FDA-Public Use
  Company Number: FR-GLAXOSMITHKLINE-FR2019141024

PATIENT
  Age: 73 Year
  Sex: Female
  Weight: 67 kg

DRUGS (3)
  1. ZINNAT [Suspect]
     Active Substance: CEFUROXIME
     Indication: INFLUENZA LIKE ILLNESS
     Dosage: 1 DF, QD
     Route: 048
     Dates: start: 20190417, end: 20190424
  2. PYOSTACINE [Suspect]
     Active Substance: PRISTINAMYCIN
     Indication: INFLUENZA LIKE ILLNESS
     Dosage: 1 DF, QD
     Route: 048
     Dates: start: 20190424, end: 20190501
  3. OROKEN [Suspect]
     Active Substance: CEFIXIME
     Indication: INFLUENZA LIKE ILLNESS
     Dosage: 1 DF, QD
     Route: 048
     Dates: start: 20190410, end: 20190417

REACTIONS (2)
  - Hepatocellular injury [Recovered/Resolved]
  - Pancreatitis [Recovered/Resolved]

NARRATIVE: CASE EVENT DATE: 20190501
